FAERS Safety Report 9342392 (Version 2)
Quarter: 2013Q3

REPORT INFORMATION
  Report Type: Spontaneous
  Country: US (occurrence: US)
  Receive Date: 20130611
  Receipt Date: 20130703
  Transmission Date: 20140515
  Serious: Yes (Other)
  Sender: FDA-Public Use
  Company Number: US-UCBSA-087633

PATIENT
  Age: 17 Year
  Sex: Male
  Weight: 103.2 kg

DRUGS (4)
  1. VIMPAT [Suspect]
     Indication: EPILEPSY
  2. VIMPAT [Suspect]
     Indication: EPILEPSY
     Route: 048
     Dates: start: 20120507
  3. KEPPRA XR [Suspect]
     Indication: CONVULSION
     Dosage: 750 MG, 5 TABS DAILY
     Route: 048
  4. KEPPRA [Suspect]

REACTIONS (5)
  - Partial seizures [Unknown]
  - Partial seizures with secondary generalisation [Not Recovered/Not Resolved]
  - Grand mal convulsion [Unknown]
  - Cerebral ischaemia [Unknown]
  - Overdose [Unknown]
